FAERS Safety Report 9972237 (Version 1)
Quarter: 2014Q1

REPORT INFORMATION
  Report Type: Spontaneous
  Country: US (occurrence: None)
  Receive Date: 20140305
  Receipt Date: 20140305
  Transmission Date: 20141002
  Serious: Yes (Disabling)
  Sender: FDA-Public Use
  Company Number: None

PATIENT
  Age: 44 Year
  Sex: Female
  Weight: 62.6 kg

DRUGS (1)
  1. CLINDAMYCIN PFIZER [Suspect]
     Indication: ENDODONTIC PROCEDURE
     Dosage: 2 PILLS
     Route: 048

REACTIONS (4)
  - Abdominal pain [None]
  - Diarrhoea [None]
  - Tongue coated [None]
  - Tongue discolouration [None]
